FAERS Safety Report 16637204 (Version 4)
Quarter: 2021Q2

REPORT INFORMATION
  Report Type: Spontaneous
  Country: DE (occurrence: DE)
  Receive Date: 20190726
  Receipt Date: 20210514
  Transmission Date: 20210716
  Serious: Yes (Death, Life-Threatening, Hospitalization, Other)
  Sender: FDA-Public Use
  Company Number: DE-GLAXOSMITHKLINE-DE2019134192

PATIENT
  Sex: Male
  Weight: 80 kg

DRUGS (6)
  1. IMBRUVICA [Suspect]
     Active Substance: IBRUTINIB
     Dosage: 420 MG, UNK
     Route: 048
     Dates: start: 20170306, end: 20170428
  2. DICLOFENAC (DICLOFENAC SODIUM) [Suspect]
     Active Substance: DICLOFENAC SODIUM
     Indication: GOUT
     Dosage: 150 MG, UNK
     Route: 065
  3. ADENURIC [Concomitant]
     Active Substance: FEBUXOSTAT
     Indication: GOUT
     Dosage: UNK
     Route: 048
  4. ASPIRIN. [Suspect]
     Active Substance: ASPIRIN
     Indication: ATRIAL FIBRILLATION
     Dosage: 100 MG, UNK
     Route: 048
  5. FASTURTEC [Concomitant]
     Active Substance: RASBURICASE
     Indication: GOUT
     Dosage: UNK
     Route: 042
  6. IMBRUVICA [Suspect]
     Active Substance: IBRUTINIB
     Indication: CHRONIC LYMPHOCYTIC LEUKAEMIA
     Dosage: 280 MG, UNK
     Route: 048
     Dates: start: 20180423

REACTIONS (6)
  - Cardiac disorder [Fatal]
  - Congestive cardiomyopathy [Fatal]
  - Coronary artery disease [Fatal]
  - General physical health deterioration [Fatal]
  - Depression [Unknown]
  - Haemorrhage [Recovered/Resolved]

NARRATIVE: CASE EVENT DATE: 20170424
